FAERS Safety Report 24138347 (Version 2)
Quarter: 2024Q3

REPORT INFORMATION
  Report Type: Spontaneous
  Country: US (occurrence: US)
  Receive Date: 20240725
  Receipt Date: 20240904
  Transmission Date: 20241017
  Serious: No
  Sender: BRISTOL MYERS SQUIBB
  Company Number: US-BRISTOL-MYERS SQUIBB COMPANY-2024-118303

PATIENT
  Age: 53 Year
  Sex: Female
  Weight: 69.85 kg

DRUGS (2)
  1. LENALIDOMIDE [Suspect]
     Active Substance: LENALIDOMIDE
     Indication: Plasma cell myeloma
     Route: 048
     Dates: start: 20240530
  2. LENALIDOMIDE [Suspect]
     Active Substance: LENALIDOMIDE
     Route: 048
     Dates: start: 20240530

REACTIONS (4)
  - Pruritus [Recovering/Resolving]
  - Off label use [Unknown]
  - Rash pruritic [Unknown]
  - Hyperhidrosis [Unknown]
